FAERS Safety Report 8467885-3 (Version None)
Quarter: 2012Q2

REPORT INFORMATION
  Report Type: 
  Country: None (occurrence: None)
  Receive Date: 20120626
  Receipt Date: 20120619
  Transmission Date: 20120825
  Serious: Yes (Hospitalization)
  Sender: FDA-Public Use
  Company Number: IL-ROCHE-1081699

PATIENT
  Sex: Female

DRUGS (3)
  1. COPEGUS [Suspect]
     Indication: HEPATITIS C
     Dosage: DATE OF LAST DOSE PRIOR TO SAE:23/APR/2012
     Dates: start: 20110302
  2. PEGASYS [Suspect]
     Indication: HEPATITIS C
     Dosage: DATE OF LAST DOSE PRIOR TO SAE: 16/APR/2012
     Route: 058
     Dates: start: 20110302
  3. TG4040 (MVA-HCV) [Suspect]
     Indication: HEPATITIS C
     Dosage: DATE OF LAST DOSE PRIOR TO SAE: 06/OCT/2011
     Route: 058
     Dates: start: 20110302

REACTIONS (1)
  - PSORIATIC ARTHROPATHY [None]
